FAERS Safety Report 13964528 (Version 1)
Quarter: 2017Q3

REPORT INFORMATION
  Report Type: Spontaneous
  Country: DE (occurrence: DE)
  Receive Date: 20170913
  Receipt Date: 20170913
  Transmission Date: 20171128
  Serious: Yes (Other)
  Sender: FDA-Public Use
  Company Number: DE-AMGEN-DEUSP2017137257

PATIENT
  Age: 78 Year
  Sex: Male

DRUGS (10)
  1. PEGFILGRASTIM [Suspect]
     Active Substance: PEGFILGRASTIM
     Indication: B-CELL LYMPHOMA
     Dosage: 6 MG, Q2WK
     Route: 048
     Dates: start: 20140307, end: 20140519
  2. VINCRISTINE [Suspect]
     Active Substance: VINCRISTINE
     Indication: B-CELL LYMPHOMA
     Dosage: 3.8 MG, Q2WK
     Route: 042
     Dates: start: 20140307, end: 20140417
  3. RITUXIMAB. [Suspect]
     Active Substance: RITUXIMAB
     Indication: B-CELL LYMPHOMA
     Dosage: 727.5 MG, Q2WK
     Route: 042
     Dates: start: 20140303, end: 20140516
  4. CYCLOPHOSPHAMIDE. [Suspect]
     Active Substance: CYCLOPHOSPHAMIDE
     Indication: B-CELL LYMPHOMA
     Dosage: 1455 MG, Q2WK
     Route: 042
     Dates: start: 20140307, end: 20140516
  5. DOXORUBICIN [Suspect]
     Active Substance: DOXORUBICIN
     Indication: B-CELL LYMPHOMA
     Dosage: 97 MG, Q2WK
     Route: 042
     Dates: start: 20140307, end: 20140516
  6. ACYCLOVIR. [Concomitant]
     Active Substance: ACYCLOVIR
     Dosage: UNK
     Route: 048
     Dates: start: 20140306, end: 20140616
  7. SULFAMETHOXAZOLE AND TRIMETHOPRIM [Concomitant]
     Active Substance: SULFAMETHOXAZOLE\TRIMETHOPRIM
     Dosage: 800 MG, 2 TIMES/WK
     Route: 048
     Dates: start: 20140306, end: 20140618
  8. LEVOFLOXACIN. [Concomitant]
     Active Substance: LEVOFLOXACIN
     Indication: PROPHYLAXIS
     Dosage: 500 MG, QD
     Route: 048
     Dates: start: 20140312, end: 20140527
  9. PREDNISONE. [Suspect]
     Active Substance: PREDNISONE
     Indication: B-CELL LYMPHOMA
     Dosage: 100 MG, UNK, DAY 1 AND DAY 15
     Route: 048
     Dates: start: 20140303, end: 20140516
  10. AMPHOTERICIN [Concomitant]
     Active Substance: AMPHOTERICIN B
     Dosage: 100 MG/ML, UNK, 4 X
     Route: 048
     Dates: start: 20140312, end: 20140521

REACTIONS (2)
  - Cerebral ischaemia [Unknown]
  - Cerebrovascular accident [Recovered/Resolved]

NARRATIVE: CASE EVENT DATE: 20140523
